FAERS Safety Report 4387001-7 (Version None)
Quarter: 2004Q2

REPORT INFORMATION
  Report Type: 
  Country: None (occurrence: None)
  Receive Date: 20040625
  Receipt Date: 20040617
  Transmission Date: 20050107
  Serious: Yes (Hospitalization, Other)
  Sender: FDA-Public Use
  Company Number: 2004-06-0261

PATIENT
  Age: 38 Year
  Sex: Female

DRUGS (1)
  1. INTRON A [Suspect]
     Indication: MALIGNANT MELANOMA
     Dosage: 33 MIU 5XW INTRAVENOUS
     Route: 042
     Dates: start: 20040514

REACTIONS (7)
  - CRYING [None]
  - DEPRESSION [None]
  - DIARRHOEA [None]
  - MIGRAINE [None]
  - SUICIDAL IDEATION [None]
  - UNEVALUABLE EVENT [None]
  - VOMITING [None]
